FAERS Safety Report 9375125 (Version 3)
Quarter: 2013Q3

REPORT INFORMATION
  Report Type: Spontaneous
  Country: JP (occurrence: JP)
  Receive Date: 20130628
  Receipt Date: 20130730
  Transmission Date: 20140515
  Serious: Yes (Other)
  Sender: FDA-Public Use
  Company Number: JP-ELI_LILLY_AND_COMPANY-JP201306006630

PATIENT
  Age: 49 Year
  Sex: Male

DRUGS (4)
  1. ZYPREXA INTRA-MUSCULAR INJECTION [Suspect]
     Indication: SCHIZOPHRENIA
     Dosage: 10 MG, QD
     Route: 030
     Dates: start: 20130617, end: 20130617
  2. DIGOXIN [Concomitant]
     Dosage: UNK
     Route: 048
     Dates: start: 20130617
  3. DIPYRIDAMOLE [Concomitant]
     Dosage: UNK
     Route: 048
     Dates: start: 20130617
  4. UBIDECARENONE [Concomitant]
     Dosage: UNK
     Route: 048
     Dates: start: 20130617

REACTIONS (2)
  - Depressed level of consciousness [Recovered/Resolved]
  - Respiratory disorder [Recovered/Resolved]
